FAERS Safety Report 13230985 (Version 1)
Quarter: 2017Q1

REPORT INFORMATION
  Report Type: Spontaneous
  Country: US (occurrence: US)
  Receive Date: 20170214
  Receipt Date: 20170214
  Transmission Date: 20170428
  Serious: No
  Sender: FDA-Public Use
  Company Number: US-009507513-1701USA013958

PATIENT
  Age: 69 Year
  Sex: Male

DRUGS (2)
  1. PROSCAR [Suspect]
     Active Substance: FINASTERIDE
     Indication: BENIGN PROSTATIC HYPERPLASIA
     Route: 065
  2. PROSCAR [Suspect]
     Active Substance: FINASTERIDE
     Indication: URINARY RETENTION

REACTIONS (1)
  - Drug ineffective [Unknown]
